FAERS Safety Report 4303635-X (Version None)
Quarter: 2004Q1

REPORT INFORMATION
  Report Type: 
  Country: None (occurrence: None)
  Receive Date: 20040224
  Receipt Date: 20040224
  Transmission Date: 20041129
  Serious: Yes (Hospitalization)
  Sender: FDA-Public Use
  Company Number: None

PATIENT
  Sex: Male
  Weight: 62.7 kg

DRUGS (20)
  1. PIPERACILLIN/TAZOBACTAM 3.375 GM WYETH [Suspect]
     Indication: LIVER ABSCESS
     Dosage: 2.25 GM Q8H IV
     Route: 042
     Dates: start: 20031218, end: 20040121
  2. RANITIDINE [Suspect]
     Indication: ASPIRATION
     Dosage: 150 MG BID ORAL
     Route: 048
     Dates: start: 20040110, end: 20040122
  3. RANITIDINE [Suspect]
     Indication: PROPHYLAXIS
     Dosage: 150 MG BID ORAL
     Route: 048
     Dates: start: 20040110, end: 20040122
  4. CITALOPRAM [Concomitant]
  5. FUROSEMIDE [Concomitant]
  6. METRONIDAZOLE [Concomitant]
  7. CLOTRIMAZOLE [Concomitant]
  8. LEVOTHYROXINE SODIUM [Concomitant]
  9. DIGOXIN [Concomitant]
  10. ALBUTEROL [Concomitant]
  11. TERAZOSIN HCL [Concomitant]
  12. FERROUS SULFATE TAB [Concomitant]
  13. CALCIUM CARBIBATE [Concomitant]
  14. IPRATROPRIUM [Concomitant]
  15. NYSTATIN [Concomitant]
  16. PANTOPRAZOLE [Concomitant]
  17. DILTIAZEM [Concomitant]
  18. PHOSPHORUS /K/NA [Concomitant]
  19. INSULIN [Concomitant]
  20. D51/KNS+K [Concomitant]

REACTIONS (1)
  - NEUTROPHIL COUNT DECREASED [None]
